FAERS Safety Report 4723140-6 (Version None)
Quarter: 2005Q3

REPORT INFORMATION
  Report Type: 
  Country: None (occurrence: None)
  Receive Date: 20050719
  Receipt Date: 20040827
  Transmission Date: 20060218
  Serious: Yes (Other)
  Sender: FDA-Public Use
  Company Number: 2004224262US

PATIENT
  Age: 80 Year
  Sex: Female
  Weight: 59 kg

DRUGS (2)
  1. CELEBREX [Suspect]
     Indication: ARTHRITIS
     Dosage: 200 MG, QD, ORAL
     Route: 048
     Dates: start: 20040611, end: 20040621
  2. TYLENOL [Concomitant]

REACTIONS (1)
  - HAEMATOCHEZIA [None]
